FAERS Safety Report 23800937 (Version 1)
Quarter: 2024Q2

REPORT INFORMATION
  Report Type: Report from Study
  Country: NL (occurrence: NL)
  Receive Date: 20240430
  Receipt Date: 20240430
  Transmission Date: 20240716
  Serious: Yes (Death)
  Sender: FDA-Public Use
  Company Number: NL-TEVA-VS-3191421

PATIENT
  Age: 75 Year
  Sex: Female

DRUGS (1)
  1. FREMANEZUMAB [Suspect]
     Active Substance: FREMANEZUMAB
     Indication: Migraine
     Route: 058
     Dates: start: 20200417, end: 20240412

REACTIONS (2)
  - Death [Fatal]
  - Product use issue [Unknown]
